FAERS Safety Report 16414626 (Version 1)
Quarter: 2019Q2

REPORT INFORMATION
  Report Type: Spontaneous
  Country: GB (occurrence: GB)
  Receive Date: 20190611
  Receipt Date: 20190611
  Transmission Date: 20190711
  Serious: Yes (Other)
  Sender: FDA-Public Use
  Company Number: PHHY2019GB133306

PATIENT
  Age: 79 Year
  Sex: Female

DRUGS (1)
  1. SECUKINUMAB. [Suspect]
     Active Substance: SECUKINUMAB
     Indication: PSORIASIS
     Dosage: UNK
     Route: 065
     Dates: start: 201902

REACTIONS (6)
  - Skin plaque [Unknown]
  - Psoriasis [Unknown]
  - Rash [Unknown]
  - Cutaneous T-cell lymphoma stage I [Unknown]
  - Lymphocyte morphology abnormal [Unknown]
  - Drug ineffective [Unknown]
